FAERS Safety Report 18084270 (Version 3)
Quarter: 2021Q2

REPORT INFORMATION
  Report Type: Spontaneous
  Country: DE (occurrence: DE)
  Receive Date: 20200729
  Receipt Date: 20210628
  Transmission Date: 20210717
  Serious: Yes (Death, Hospitalization)
  Sender: FDA-Public Use
  Company Number: DE-TEVA-2020-DE-1806549

PATIENT
  Age: 55 Year

DRUGS (2)
  1. ALLOPURINOL. [Suspect]
     Active Substance: ALLOPURINOL
     Indication: HYPERURICAEMIA
     Route: 065
  2. AZATHIOPRINE. [Interacting]
     Active Substance: AZATHIOPRINE
     Indication: VASCULITIS
     Dosage: 100 MILLIGRAM DAILY;
     Route: 065

REACTIONS (17)
  - Speech disorder [Unknown]
  - Drug interaction [Unknown]
  - General physical health deterioration [Unknown]
  - Cholecystitis acute [Unknown]
  - Sepsis [Unknown]
  - Death [Fatal]
  - Pancytopenia [Unknown]
  - Myelosuppression [Unknown]
  - Blindness cortical [Unknown]
  - Seizure [Unknown]
  - Pneumonia [Unknown]
  - Coagulopathy [Unknown]
  - Cerebral infarction [Unknown]
  - Cholelithiasis [Unknown]
  - Abscess limb [Unknown]
  - Cerebral ischaemia [Unknown]
  - Motor dysfunction [Unknown]
